FAERS Safety Report 5142020-8 (Version None)
Quarter: 2006Q4

REPORT INFORMATION
  Report Type: 
  Country: None (occurrence: None)
  Receive Date: 20061102
  Receipt Date: 20061020
  Transmission Date: 20070319
  Serious: Yes (Congenital Anomaly)
  Sender: FDA-Public Use
  Company Number: PHBS2006JP16564

PATIENT
  Age: 1 Day
  Sex: Male
  Weight: 2.94 kg

DRUGS (4)
  1. ALEVIATIN [Concomitant]
     Dosage: MATERNAL DOSE 500 MG/DAY
     Route: 064
  2. DIAMOX [Concomitant]
     Dosage: MATERNAL DOSE 250 MG/DAY
     Route: 064
  3. NITRAZEPAM [Concomitant]
     Dosage: MATERNAL DOSE 5 MG/DAY
     Route: 064
  4. TEGRETOL [Suspect]
     Dosage: MATERNAL DOSE 120 MG/DAY
     Route: 064

REACTIONS (2)
  - DRUG EXPOSURE DURING PREGNANCY [None]
  - HYPOSPADIAS [None]
